FAERS Safety Report 9494575 (Version 1)
Quarter: 2013Q3

REPORT INFORMATION
  Report Type: Report from Study
  Country: US (occurrence: US)
  Receive Date: 20130903
  Receipt Date: 20130903
  Transmission Date: 20140515
  Serious: Yes (Hospitalization, Other)
  Sender: FDA-Public Use
  Company Number: US-PFIZER INC-2013217516

PATIENT
  Age: 52 Year
  Sex: Male

DRUGS (2)
  1. ENBREL [Suspect]
     Indication: PSORIASIS
     Dosage: 25 MG, 2 TIMES/WK
     Route: 065
     Dates: start: 2005
  2. IBUPROFEN [Suspect]
     Dosage: UNK

REACTIONS (8)
  - Bipolar disorder [Recovered/Resolved]
  - Osteonecrosis [Recovered/Resolved]
  - Arthropathy [Recovered/Resolved]
  - Depression [Not Recovered/Not Resolved]
  - Psoriatic arthropathy [Not Recovered/Not Resolved]
  - Psoriasis [Not Recovered/Not Resolved]
  - Skin haemorrhage [Unknown]
  - Overdose [Recovered/Resolved]
